FAERS Safety Report 5896729-9 (Version None)
Quarter: 2008Q3

REPORT INFORMATION
  Report Type: 
  Country: None (occurrence: None)
  Receive Date: 20080924
  Receipt Date: 20071203
  Transmission Date: 20090109
  Serious: No
  Sender: FDA-Public Use
  Company Number: US-ASTRAZENECA-2007UW27580

PATIENT
  Age: 50 Year
  Sex: Male

DRUGS (6)
  1. SEROQUEL [Suspect]
     Dosage: 100 MG 1/2 TABLET
     Route: 048
     Dates: start: 20071023, end: 20071023
  2. ZOLOFT [Concomitant]
  3. ZOLOFT [Concomitant]
  4. PROTONIX [Concomitant]
  5. CRESTOR [Concomitant]
  6. CLONAZEPAM [Concomitant]

REACTIONS (4)
  - CONFUSIONAL STATE [None]
  - FATIGUE [None]
  - MUSCLE TWITCHING [None]
  - MUSCULOSKELETAL PAIN [None]
